FAERS Safety Report 10867901 (Version 1)
Quarter: 2015Q1

REPORT INFORMATION
  Report Type: Spontaneous
  Country: US (occurrence: US)
  Receive Date: 20150225
  Receipt Date: 20150225
  Transmission Date: 20150721
  Serious: No
  Sender: FDA-Public Use
  Company Number: US-VIVUS-2014V1000672

PATIENT
  Age: 67 Year
  Sex: Male
  Weight: 90.8 kg

DRUGS (3)
  1. DICLOFENAC [Concomitant]
     Active Substance: DICLOFENAC
  2. TAMSULOSIN [Concomitant]
     Active Substance: TAMSULOSIN
  3. STENDRA [Suspect]
     Active Substance: AVANAFIL
     Indication: ERECTILE DYSFUNCTION
     Dosage: 100 MG
     Route: 048

REACTIONS (2)
  - Drug ineffective [Not Recovered/Not Resolved]
  - Inappropriate schedule of drug administration [Not Recovered/Not Resolved]
